FAERS Safety Report 21737396 (Version 1)
Quarter: 2022Q4

REPORT INFORMATION
  Report Type: Spontaneous
  Country: US (occurrence: US)
  Receive Date: 20221216
  Receipt Date: 20221216
  Transmission Date: 20230112
  Serious: No
  Sender: FDA-Public Use
  Company Number: US-drreddys-SPO/USA/22/0157967

PATIENT
  Age: 20 Year
  Sex: Female

DRUGS (1)
  1. ZENATANE [Suspect]
     Active Substance: ISOTRETINOIN
     Indication: Product used for unknown indication
     Dosage: RMA ISSUE DATE: 23 JUNE 2022 11:10:44 AM, 20 JULY 2022 09:18:33 AM, 26 AUGUST 2022 09:53:05 AM, 26 S

REACTIONS (1)
  - Treatment noncompliance [Unknown]
